FAERS Safety Report 17236314 (Version 1)
Quarter: 2020Q1

REPORT INFORMATION
  Report Type: Spontaneous
  Country: PR (occurrence: PR)
  Receive Date: 20200106
  Receipt Date: 20200106
  Transmission Date: 20200409
  Serious: Yes (Other)
  Sender: FDA-Public Use
  Company Number: PR-PFIZER INC-2019562753

PATIENT
  Age: 63 Year
  Sex: Female

DRUGS (1)
  1. XELJANZ XR [Suspect]
     Active Substance: TOFACITINIB CITRATE
     Indication: RHEUMATOID ARTHRITIS
     Dosage: 11 MG, DAILY
     Dates: start: 20190308, end: 20190716

REACTIONS (4)
  - Cataract [Unknown]
  - Cough [Unknown]
  - Oropharyngeal pain [Unknown]
  - Arthritis [Unknown]

NARRATIVE: CASE EVENT DATE: 201907
